FAERS Safety Report 13551036 (Version 3)
Quarter: 2017Q2

REPORT INFORMATION
  Report Type: Report from Study
  Country: US (occurrence: US)
  Receive Date: 20170516
  Receipt Date: 20170524
  Transmission Date: 20170830
  Serious: Yes (Hospitalization, Other)
  Sender: FDA-Public Use
  Company Number: US-VIFOR (INTERNATIONAL) INC.-VIT-2017-05298

PATIENT
  Sex: Male

DRUGS (2)
  1. VELTASSA [Suspect]
     Active Substance: PATIROMER
     Indication: HYPERKALAEMIA
     Route: 048
     Dates: start: 20170412
  2. VELTASSA [Suspect]
     Active Substance: PATIROMER
     Dates: start: 201705

REACTIONS (6)
  - Inappropriate schedule of drug administration [Unknown]
  - Cystitis [Unknown]
  - Balance disorder [Unknown]
  - Dehydration [Unknown]
  - Retching [Unknown]
  - Blood potassium increased [Unknown]

NARRATIVE: CASE EVENT DATE: 2017
